FAERS Safety Report 5045308-4 (Version None)
Quarter: 2006Q3

REPORT INFORMATION
  Report Type: 
  Country: None (occurrence: None)
  Receive Date: 20060707
  Receipt Date: 20060614
  Transmission Date: 20061208
  Serious: Yes (Hospitalization)
  Sender: FDA-Public Use
  Company Number: FR-MERCK-0606FRA00030

PATIENT
  Age: 8 Year
  Sex: Male

DRUGS (5)
  1. SINGULAIR [Suspect]
     Indication: ASTHMA
     Route: 048
     Dates: start: 20050701, end: 20060302
  2. SINGULAIR [Suspect]
     Route: 048
     Dates: start: 20060603, end: 20060607
  3. DESLORATADINE [Concomitant]
     Route: 048
  4. SALMETEROL XINAFOATE [Concomitant]
     Indication: ASTHMA
     Route: 055
  5. AZELASTINE HYDROCHLORIDE [Concomitant]
     Indication: CONJUNCTIVITIS ALLERGIC
     Route: 065

REACTIONS (3)
  - FATIGUE [None]
  - MALAISE [None]
  - NIGHTMARE [None]
